FAERS Safety Report 18658414 (Version 1)
Quarter: 2020Q4

REPORT INFORMATION
  Report Type: Spontaneous
  Country: HR (occurrence: HR)
  Receive Date: 20201223
  Receipt Date: 20201223
  Transmission Date: 20210114
  Serious: Yes (Other)
  Sender: FDA-Public Use
  Company Number: HR-MYLANLABS-2020M1103456

PATIENT
  Sex: Female

DRUGS (2)
  1. FULVESTRANT. [Suspect]
     Active Substance: FULVESTRANT
     Indication: BREAST CANCER METASTATIC
     Dosage: PATIENT OWERALL RECIEVED 6 CYCLES OF THESE DRUGS
     Route: 065
  2. RIBOCICLIB. [Suspect]
     Active Substance: RIBOCICLIB
     Indication: BREAST CANCER METASTATIC
     Dosage: PATIENT OWERALL RECIEVED 6 CYCLES OF THESE DRUGS
     Route: 065

REACTIONS (8)
  - Gastrointestinal wall thickening [Unknown]
  - PIK3CA-activated mutation [Unknown]
  - Metastases to bone [Unknown]
  - Malignant neoplasm progression [Unknown]
  - Breast cancer [Unknown]
  - Metastases to liver [Unknown]
  - Hepatic lesion [Unknown]
  - Osteolysis [Unknown]

NARRATIVE: CASE EVENT DATE: 20200527
